FAERS Safety Report 7705657-5 (Version None)
Quarter: 2011Q3

REPORT INFORMATION
  Report Type: 
  Country: None (occurrence: None)
  Receive Date: 20110824
  Receipt Date: 20110817
  Transmission Date: 20111222
  Serious: Yes (Hospitalization, Other)
  Sender: FDA-Public Use
  Company Number: US-SANOFI-AVENTIS-2010SA068822

PATIENT
  Age: 72 Year
  Sex: Female

DRUGS (8)
  1. WARFARIN SODIUM [Suspect]
     Indication: ATRIAL FIBRILLATION
     Route: 048
     Dates: end: 20101015
  2. MULTAQ [Suspect]
     Route: 065
     Dates: start: 20100421, end: 20101015
  3. OMEPRAZOLE [Concomitant]
  4. SYNTHROID [Concomitant]
  5. METOPROLOL [Concomitant]
  6. CENTRUM [Concomitant]
  7. AMLODIPINE [Concomitant]
  8. ALPRAZOLAM [Concomitant]

REACTIONS (13)
  - HEPATIC ENZYME INCREASED [None]
  - HEPATIC FAILURE [None]
  - HEPATIC ENCEPHALOPATHY [None]
  - PANCYTOPENIA [None]
  - RENAL IMPAIRMENT [None]
  - INTERNATIONAL NORMALISED RATIO INCREASED [None]
  - BLOOD BILIRUBIN INCREASED [None]
  - COAGULOPATHY [None]
  - JAUNDICE [None]
  - ANAEMIA [None]
  - ASCITES [None]
  - PLEURAL EFFUSION [None]
  - RESPIRATORY FAILURE [None]
